FAERS Safety Report 8322225-5 (Version None)
Quarter: 2012Q2

REPORT INFORMATION
  Report Type: 
  Country: None (occurrence: None)
  Receive Date: 20120430
  Receipt Date: 20120222
  Transmission Date: 20120825
  Serious: No
  Sender: FDA-Public Use
  Company Number: US-COVIDIEN/TYCO HEALTHCARE/MALLINCKRODT-T201200693

PATIENT
  Sex: Female

DRUGS (3)
  1. OMEPRAZOLE [Concomitant]
     Indication: REFLUX GASTRITIS
     Dosage: 40 MG, QD
     Route: 048
  2. HYDROCODONE BITARTRATE + ACETAMINOPHEN [Suspect]
     Indication: PAIN
     Dosage: 5/500 MG Q4 HRS PRN
     Route: 048
     Dates: start: 20120101, end: 20120101
  3. LIPITOR [Concomitant]
     Indication: BLOOD CHOLESTEROL INCREASED
     Dosage: 10 MG, QD
     Route: 048

REACTIONS (2)
  - DYSPNOEA [None]
  - CHEST PAIN [None]
